FAERS Safety Report 13618662 (Version 3)
Quarter: 2017Q4

REPORT INFORMATION
  Report Type: Report from Study
  Country: KR (occurrence: KR)
  Receive Date: 20170606
  Receipt Date: 20171025
  Transmission Date: 20180320
  Serious: Yes (Death, Other)
  Sender: FDA-Public Use
  Company Number: KR-OTSUKA-2017_011554

PATIENT
  Age: 78 Year
  Sex: Male
  Weight: 59.3 kg

DRUGS (25)
  1. FUROSEMIDE. [Concomitant]
     Active Substance: FUROSEMIDE
     Indication: PRE-EXISTING DISEASE
     Dosage: 480 MG, QD
     Route: 042
     Dates: start: 20170504, end: 20170504
  2. FUROSEMIDE. [Concomitant]
     Active Substance: FUROSEMIDE
     Dosage: 360 MG, QD
     Route: 042
     Dates: start: 20170505, end: 20170506
  3. AMBROXOL [Concomitant]
     Active Substance: AMBROXOL
     Indication: PRE-EXISTING DISEASE
     Dosage: 60 MG, QD
     Route: 048
  4. MOSAPRIDE [Concomitant]
     Active Substance: MOSAPRIDE
     Indication: PROPHYLAXIS
     Dosage: 15 MG, QD
     Route: 048
     Dates: start: 20170506
  5. DOPAMINE [Concomitant]
     Active Substance: DOPAMINE\DOPAMINE HYDROCHLORIDE
     Indication: PRE-EXISTING DISEASE
     Dosage: UNK
     Route: 042
     Dates: start: 20170504, end: 20170507
  6. CLOPIDOGREL [Concomitant]
     Active Substance: CLOPIDOGREL BISULFATE
     Indication: PRE-EXISTING DISEASE
     Dosage: 75 MG, UNK
     Route: 048
  7. SPIRONOLACTONE. [Concomitant]
     Active Substance: SPIRONOLACTONE
     Indication: PRE-EXISTING DISEASE
     Dosage: 50 MG, QD
     Route: 048
  8. IVABRADINE [Concomitant]
     Active Substance: IVABRADINE
     Indication: PRE-EXISTING DISEASE
     Dosage: 5 MG, QD
     Route: 048
  9. AMIODARONE [Concomitant]
     Active Substance: AMIODARONE
     Indication: PRE-EXISTING DISEASE
     Dosage: 100 MG, QD
     Route: 048
  10. ZOLPIDEM [Concomitant]
     Active Substance: ZOLPIDEM\ZOLPIDEM TARTRATE
     Indication: PRE-EXISTING DISEASE
     Dosage: 10 MG, QD
     Route: 048
  11. ETIZOLAM [Concomitant]
     Active Substance: ETIZOLAM
     Indication: PRE-EXISTING DISEASE
     Dosage: 0.25 MG, QD
     Route: 048
     Dates: start: 20170505, end: 20170505
  12. FUROSEMIDE. [Concomitant]
     Active Substance: FUROSEMIDE
     Dosage: 300 MG, QD
     Route: 042
     Dates: start: 20170508, end: 20170508
  13. BISACODYL. [Concomitant]
     Active Substance: BISACODYL
     Dosage: 2 DF, QD
     Route: 065
     Dates: start: 20170512
  14. MG0 [Concomitant]
     Indication: PRE-EXISTING DISEASE
     Dosage: 1500 MG, QD
     Route: 048
  15. TAMSULOSIN [Concomitant]
     Active Substance: TAMSULOSIN
     Indication: PROPHYLAXIS
     Dosage: 0.2 MG, QD
     Route: 048
     Dates: start: 20170508
  16. TOLVAPTAN [Suspect]
     Active Substance: TOLVAPTAN
     Dosage: 15 MG, QD
     Route: 048
     Dates: start: 20170504, end: 20170504
  17. BISACODYL. [Concomitant]
     Active Substance: BISACODYL
     Indication: PRE-EXISTING DISEASE
     Dosage: 2 DF, QD
     Route: 065
     Dates: start: 20170504, end: 20170504
  18. NACL [Concomitant]
     Active Substance: SODIUM CHLORIDE
     Indication: PRE-EXISTING DISEASE
     Dosage: 30/DAY
     Route: 042
     Dates: start: 20170504, end: 20170504
  19. FUROSEMIDE. [Concomitant]
     Active Substance: FUROSEMIDE
     Dosage: 180 MG, QD
     Route: 042
     Dates: start: 20170511
  20. TOLVAPTAN [Suspect]
     Active Substance: TOLVAPTAN
     Indication: HYPONATRAEMIA
     Dosage: 15 MG, QD
     Route: 048
     Dates: start: 20170508
  21. FUROSEMIDE. [Concomitant]
     Active Substance: FUROSEMIDE
     Dosage: 200 MG, QD
     Route: 042
     Dates: start: 20170509, end: 20170509
  22. FUROSEMIDE. [Concomitant]
     Active Substance: FUROSEMIDE
     Dosage: 180 MG, QD
     Route: 042
     Dates: start: 20170510, end: 20170510
  23. PITAVASTATIN. [Concomitant]
     Active Substance: PITAVASTATIN CALCIUM
     Indication: PRE-EXISTING DISEASE
     Dosage: 2 MG, QD
     Route: 048
  24. NACL [Concomitant]
     Active Substance: SODIUM CHLORIDE
     Dosage: 40/DAY
     Route: 042
     Dates: start: 20170508, end: 20170508
  25. NACL [Concomitant]
     Active Substance: SODIUM CHLORIDE
     Dosage: 60/DAY
     Route: 042
     Dates: start: 20170510, end: 20170510

REACTIONS (7)
  - Blood calcium decreased [Recovered/Resolved]
  - Blood creatinine increased [Recovered/Resolved]
  - Platelet count decreased [Recovered/Resolved]
  - Vomiting [Recovered/Resolved]
  - Dyspnoea [Not Recovered/Not Resolved]
  - Weight increased [Recovered/Resolved]
  - Cardiac failure [Fatal]

NARRATIVE: CASE EVENT DATE: 20170508
